FAERS Safety Report 7423336-9 (Version None)
Quarter: 2011Q2

REPORT INFORMATION
  Report Type: 
  Country: None (occurrence: None)
  Receive Date: 20110419
  Receipt Date: 20110405
  Transmission Date: 20111010
  Serious: Yes (Other)
  Sender: FDA-Public Use
  Company Number: PHHY2011US31441

PATIENT
  Sex: Female

DRUGS (8)
  1. NEXIUM [Concomitant]
  2. COZAAR [Concomitant]
  3. LISINOPRIL [Concomitant]
  4. LASIX [Suspect]
  5. INHALER [Concomitant]
  6. UNKNOWN GENERIC BP MEDICATIONS [Concomitant]
  7. DIOVAN HCT [Suspect]
     Dosage: 1 DF, UNK
  8. DIOVAN [Suspect]

REACTIONS (5)
  - PULMONARY OEDEMA [None]
  - CARDIOMEGALY [None]
  - POLLAKIURIA [None]
  - FEELING ABNORMAL [None]
  - DYSPNOEA [None]
